FAERS Safety Report 15377858 (Version 1)
Quarter: 2018Q3

REPORT INFORMATION
  Report Type: Spontaneous
  Country: LK (occurrence: LK)
  Receive Date: 20180913
  Receipt Date: 20180913
  Transmission Date: 20181010
  Serious: Yes (Hospitalization)
  Sender: FDA-Public Use
  Company Number: LK-MYLANLABS-2018M1065027

PATIENT
  Age: 30 Year
  Sex: Male

DRUGS (6)
  1. AMPHOTERICIN B, LIPOSOME [Suspect]
     Active Substance: AMPHOTERICIN B
     Indication: ASPERGILLUS INFECTION
     Dosage: 3 MG/KG, QD
     Route: 042
  2. RIFAMPICIN [Suspect]
     Active Substance: RIFAMPIN
     Indication: DISSEMINATED TUBERCULOSIS
     Route: 065
  3. BISOPROLOL [Concomitant]
     Active Substance: BISOPROLOL
     Indication: HYPERTENSION
     Route: 065
  4. PRAZOSIN. [Concomitant]
     Active Substance: PRAZOSIN
     Indication: HYPERTENSION
     Route: 065
  5. PREDNISOLONE. [Suspect]
     Active Substance: PREDNISOLONE
     Indication: MESANGIOPROLIFERATIVE GLOMERULONEPHRITIS
     Dosage: 0.5 MG/KG, QD
     Route: 065
  6. VORICONAZOLE. [Interacting]
     Active Substance: VORICONAZOLE
     Indication: ASPERGILLUS INFECTION
     Dosage: 500 MG
     Route: 048

REACTIONS (17)
  - Splenic abscess [Recovered/Resolved]
  - Spleen tuberculosis [Recovered/Resolved]
  - Treatment failure [Unknown]
  - Immune system disorder [Recovered/Resolved]
  - Septic embolus [Unknown]
  - Disseminated tuberculosis [Recovered/Resolved]
  - Pulmonary embolism [Recovered/Resolved]
  - Pneumonia [Recovered/Resolved]
  - Bronchopulmonary aspergillosis [Recovered/Resolved]
  - Cytomegalovirus infection [Recovered/Resolved]
  - Peripheral embolism [Recovered/Resolved]
  - Facial paralysis [Recovered/Resolved]
  - Drug interaction [Unknown]
  - Pleural effusion [Recovered/Resolved]
  - Aspergillus infection [Recovered/Resolved]
  - Peripheral ischaemia [Recovered/Resolved]
  - Fungal infection [Unknown]
